FAERS Safety Report 5586186-4 (Version None)
Quarter: 2007Q4

REPORT INFORMATION
  Report Type: 
  Country: None (occurrence: None)
  Receive Date: 20071203
  Receipt Date: 20061124
  Transmission Date: 20080405
  Serious: Yes (Other)
  Sender: FDA-Public Use
  Company Number: 2006106952

PATIENT
  Age: 17 Year
  Sex: Male
  Weight: 64 kg

DRUGS (6)
  1. ZYVOX [Suspect]
     Indication: WOUND
     Dosage: 1200 MG (600 MG,EVERY DAY)
     Dates: start: 20060822, end: 20060830
  2. DIFLUCAN [Concomitant]
  3. ALL OTHER THERAPEUTIC PRODUCTS (ALL OTHER THERAPEUTIC PRODUCTS) [Concomitant]
  4. ACETAMINOPHEN [Concomitant]
  5. BENADRYL [Concomitant]
  6. MULTIVITAMS (MULTIVITAMINS) [Concomitant]

REACTIONS (1)
  - VISUAL ACUITY REDUCED [None]
